FAERS Safety Report 4976368-4 (Version None)
Quarter: 2006Q2

REPORT INFORMATION
  Report Type: 
  Country: None (occurrence: None)
  Receive Date: 20060412
  Receipt Date: 20060330
  Transmission Date: 20061013
  Serious: Yes (Other)
  Sender: FDA-Public Use
  Company Number: 2006045020

PATIENT
  Sex: Female

DRUGS (1)
  1. SALAZOPRIN              (SULFASALZINE) [Suspect]
     Indication: SERONEGATIVE ARTHRITIS
     Dosage: 1000 MG (500 MG, 2 N 1 D)

REACTIONS (3)
  - LYMPHADENOPATHY [None]
  - MALAISE [None]
  - RASH ERYTHEMATOUS [None]
